FAERS Safety Report 6144629-1 (Version None)
Quarter: 2009Q2

REPORT INFORMATION
  Report Type: 
  Country: None (occurrence: None)
  Receive Date: 20090406
  Receipt Date: 20090330
  Transmission Date: 20091009
  Serious: Yes (Congenital Anomaly)
  Sender: FDA-Public Use
  Company Number: A0662932A

PATIENT
  Sex: Female
  Weight: 2.7 kg

DRUGS (11)
  1. PAXIL [Suspect]
     Indication: DEPRESSION
     Dosage: 20MG PER DAY
     Dates: start: 19960101
  2. HYDROCODONE BITARTRATE + ACETAMINOPHEN [Concomitant]
     Dates: start: 20020313
  3. METOCLOPRAMIDE [Concomitant]
     Dates: start: 20020314
  4. PROMETHEGAN [Concomitant]
     Dates: start: 20020422
  5. PROMETHAZINE [Concomitant]
     Dates: start: 20020422
  6. CYCLOBENZAPRINE [Concomitant]
     Dates: start: 20020820
  7. RANITIDINE [Concomitant]
     Dates: start: 20020923
  8. VITAMIN TAB [Concomitant]
  9. IRON [Concomitant]
  10. ALBUTEROL [Concomitant]
  11. COLACE [Concomitant]

REACTIONS (6)
  - ATRIAL SEPTAL DEFECT [None]
  - CARDIAC MURMUR [None]
  - DEAFNESS [None]
  - DRUG EXPOSURE DURING PREGNANCY [None]
  - PATENT DUCTUS ARTERIOSUS [None]
  - TRANSPOSITION OF THE GREAT VESSELS [None]
